FAERS Safety Report 10973060 (Version 3)
Quarter: 2024Q4

REPORT INFORMATION
  Report Type: Spontaneous
  Country: US (occurrence: US)
  Receive Date: 20150401
  Receipt Date: 20241029
  Transmission Date: 20250115
  Serious: Yes (Other)
  Sender: JOHNSON AND JOHNSON
  Company Number: US-JNJFOC-20131102104

PATIENT
  Age: 5 Year
  Sex: Male

DRUGS (3)
  1. RISPERDAL [Suspect]
     Active Substance: RISPERIDONE
     Indication: Autism spectrum disorder
     Route: 048
     Dates: end: 201202
  2. RISPERDAL [Suspect]
     Active Substance: RISPERIDONE
     Indication: Encephalopathy
  3. RISPERIDONE [Suspect]
     Active Substance: RISPERIDONE
     Indication: Product used for unknown indication
     Route: 065

REACTIONS (11)
  - Suicidal ideation [Unknown]
  - Tardive dyskinesia [Unknown]
  - Obesity [Unknown]
  - Excessive eye blinking [Unknown]
  - Back disorder [Unknown]
  - Onychophagia [Unknown]
  - Muscle disorder [Unknown]
  - Emotional distress [Unknown]
  - Aggression [Unknown]
  - Gynaecomastia [Unknown]
  - Fine motor skill dysfunction [Unknown]
